FAERS Safety Report 15010603 (Version 1)
Quarter: 2018Q2

REPORT INFORMATION
  Report Type: Spontaneous
  Country: US (occurrence: US)
  Receive Date: 20180529
  Receipt Date: 20180529
  Transmission Date: 20180711
  Serious: Yes (Hospitalization)
  Sender: FDA-Public Use
  Company Number: None

PATIENT
  Sex: Male

DRUGS (1)
  1. GRANIX [Suspect]
     Active Substance: TBO-FILGRASTIM
     Indication: ANAPLASTIC LARGE-CELL LYMPHOMA
     Dosage: ?          OTHER FREQUENCY:QD FOR 5/21 DAYS;?
     Route: 058
     Dates: start: 20180511

REACTIONS (1)
  - Hospitalisation [None]
